FAERS Safety Report 25330394 (Version 1)
Quarter: 2025Q2

REPORT INFORMATION
  Report Type: Spontaneous
  Country: US (occurrence: None)
  Receive Date: 20250516
  Receipt Date: 20250516
  Transmission Date: 20250717
  Serious: Yes (Disabling)
  Sender: FDA-CTU
  Company Number: None

PATIENT
  Age: 30 Year
  Sex: Female
  Weight: 65.7 kg

DRUGS (4)
  1. ESCITALOPRAM OXALATE [Suspect]
     Active Substance: ESCITALOPRAM OXALATE
     Indication: Anxiety
     Dosage: DILY ORAL
     Route: 048
  2. ESCITALOPRAM [Concomitant]
     Active Substance: ESCITALOPRAM OXALATE
  3. UNSPECIFIED INGREDIENT [Concomitant]
     Active Substance: UNSPECIFIED INGREDIENT
  4. OMEGA 3 [Concomitant]
     Active Substance: CAPSAICIN

REACTIONS (21)
  - Aggression [None]
  - Irritability [None]
  - Attention deficit hyperactivity disorder [None]
  - Cognitive disorder [None]
  - Thought blocking [None]
  - Withdrawal syndrome [None]
  - Postural orthostatic tachycardia syndrome [None]
  - Autonomic nervous system imbalance [None]
  - Mast cell activation syndrome [None]
  - Food intolerance [None]
  - Gastrointestinal disorder [None]
  - Body temperature abnormal [None]
  - Exercise lack of [None]
  - Hyperacusis [None]
  - Akathisia [None]
  - Muscle twitching [None]
  - Sleep disorder [None]
  - Eye pain [None]
  - Vitreous floaters [None]
  - Vision blurred [None]
  - Fatigue [None]

NARRATIVE: CASE EVENT DATE: 20230301
